FAERS Safety Report 10233555 (Version 1)
Quarter: 2014Q1

REPORT INFORMATION
  Report Type: Spontaneous
  Country: US (occurrence: None)
  Receive Date: 20140306
  Receipt Date: 20140306
  Transmission Date: 20141002
  Serious: Yes (Life-Threatening, Other)
  Sender: FDA-Public Use
  Company Number: 163-21880-13052738

PATIENT
  Age: 70 Year
  Sex: Male

DRUGS (5)
  1. REVLIMID (LENALIDOMIDE) (25 MILLIGRAM, CAPSULES) [Suspect]
     Indication: PLASMA CELL MYELOMA
     Route: 048
     Dates: start: 200907, end: 2009
  2. TUSSINEX (TUSSIONEX ^PENNWALT^) [Concomitant]
  3. DEXAMETHASONE (DEXAMETHASONE) [Concomitant]
  4. HYDROCODONE/APAP (VICODIN) [Concomitant]
  5. MECLIZINE (MECLOZINE) [Concomitant]

REACTIONS (2)
  - Pulmonary thrombosis [None]
  - Thrombosis [None]
